FAERS Safety Report 11170809 (Version 1)
Quarter: 2015Q2

REPORT INFORMATION
  Report Type: Spontaneous
  Country: US (occurrence: None)
  Receive Date: 20150605
  Receipt Date: 20150605
  Transmission Date: 20150821
  Serious: Yes (Disabling)
  Sender: FDA-Public Use
  Company Number: None

PATIENT
  Age: 67 Year
  Sex: Female
  Weight: 95.26 kg

DRUGS (10)
  1. GABAPENTIN. [Concomitant]
     Active Substance: GABAPENTIN
  2. VITAMIN B12 [Concomitant]
     Active Substance: CYANOCOBALAMIN
  3. ANASTROZOLE 1MG FILM COATED TABLETS [Suspect]
     Active Substance: ANASTROZOLE
     Indication: BREAST CANCER
     Route: 048
     Dates: start: 20141014, end: 20150415
  4. SYNTHROID [Concomitant]
     Active Substance: LEVOTHYROXINE SODIUM
  5. TOVIAZ [Concomitant]
     Active Substance: FESOTERODINE FUMARATE
  6. VITAMIN D [Concomitant]
     Active Substance: CHOLECALCIFEROL
  7. ULORIC [Concomitant]
     Active Substance: FEBUXOSTAT
  8. VERAPAMIL [Concomitant]
     Active Substance: VERAPAMIL HYDROCHLORIDE
  9. TRAMADOL [Concomitant]
     Active Substance: TRAMADOL
  10. TYLENOL [Concomitant]
     Active Substance: ACETAMINOPHEN

REACTIONS (3)
  - Foot fracture [None]
  - Stress fracture [None]
  - Grip strength decreased [None]

NARRATIVE: CASE EVENT DATE: 20150415
